FAERS Safety Report 13092135 (Version 3)
Quarter: 2017Q1

REPORT INFORMATION
  Report Type: Report from Study
  Country: None (occurrence: US)
  Receive Date: 20170106
  Receipt Date: 20170215
  Transmission Date: 20170428
  Serious: Yes (Hospitalization, Other)
  Sender: FDA-Public Use
  Company Number: US-AMAG PHARMACEUTICALS, INC.-AMAG201603224

PATIENT

DRUGS (1)
  1. MAKENA [Suspect]
     Active Substance: HYDROXYPROGESTERONE CAPROATE
     Indication: PRODUCT USED FOR UNKNOWN INDICATION
     Dosage: UNK
     Route: 065
     Dates: start: 20161204, end: 20170115

REACTIONS (4)
  - Placenta praevia [Unknown]
  - Premature delivery [Recovered/Resolved]
  - Uterine contractions during pregnancy [Not Recovered/Not Resolved]
  - Premature labour [Unknown]

NARRATIVE: CASE EVENT DATE: 2016
